FAERS Safety Report 17324846 (Version 3)
Quarter: 2020Q1

REPORT INFORMATION
  Report Type: Spontaneous
  Country: US (occurrence: US)
  Receive Date: 20200127
  Receipt Date: 20200310
  Transmission Date: 20200409
  Serious: Yes (Hospitalization, Other)
  Sender: FDA-Public Use
  Company Number: US-SHIRE-US202002082

PATIENT
  Age: 45 Year
  Sex: Female

DRUGS (2)
  1. NATPARA (PARATHYROID HORMONE) [Suspect]
     Active Substance: PARATHYROID HORMONE
     Indication: PRODUCT USED FOR UNKNOWN INDICATION
     Dosage: 50 MICROGRAM, 1X/DAY:QD
     Route: 065
     Dates: start: 20190904
  2. NATPARA (PARATHYROID HORMONE) [Suspect]
     Active Substance: PARATHYROID HORMONE
     Dosage: UNK
     Route: 065
     Dates: start: 202001

REACTIONS (6)
  - Gastrointestinal infection [Unknown]
  - Gastroenteritis viral [Unknown]
  - Recalled product [Unknown]
  - Hypoaesthesia [Unknown]
  - Product dose omission [Unknown]
  - Product distribution issue [Unknown]

NARRATIVE: CASE EVENT DATE: 201909
